FAERS Safety Report 7899159-3 (Version None)
Quarter: 2011Q4

REPORT INFORMATION
  Report Type: 
  Country: None (occurrence: None)
  Receive Date: 20111107
  Receipt Date: 20110916
  Transmission Date: 20120403
  Serious: No
  Sender: FDA-Public Use
  Company Number: US-AMGEN-USASP2011047883

PATIENT
  Age: 35 Year
  Sex: Female

DRUGS (1)
  1. ENBREL [Suspect]
     Indication: RHEUMATOID ARTHRITIS
     Dosage: 25 MG, 2 TIMES/WK
     Dates: start: 20101101

REACTIONS (6)
  - NAUSEA [None]
  - WEIGHT DECREASED [None]
  - FATIGUE [None]
  - VOMITING [None]
  - INSOMNIA [None]
  - PARAESTHESIA [None]
